FAERS Safety Report 9774887 (Version 1)
Quarter: 2013Q4

REPORT INFORMATION
  Report Type: Spontaneous
  Country: US (occurrence: None)
  Receive Date: 20131218
  Receipt Date: 20131218
  Transmission Date: 20140711
  Serious: Yes (Life-Threatening, Hospitalization)
  Sender: FDA-Public Use
  Company Number: DAV-AE-DOX-13-02

PATIENT
  Age: 34 Year
  Sex: Male

DRUGS (2)
  1. DOXAZOSIN [Suspect]
     Indication: OVERDOSE
     Dosage: 4MG, 100 TABLETS, UNK
  2. PROPRANOLOL [Concomitant]

REACTIONS (6)
  - Lethargy [None]
  - Bradycardia [None]
  - Renal failure [None]
  - Circulatory collapse [None]
  - Shock [None]
  - Overdose [None]
